FAERS Safety Report 16943538 (Version 1)
Quarter: 2019Q4

REPORT INFORMATION
  Report Type: Spontaneous
  Country: CN (occurrence: CN)
  Receive Date: 20191022
  Receipt Date: 20191022
  Transmission Date: 20200122
  Serious: Yes (Hospitalization)
  Sender: FDA-Public Use
  Company Number: CN-ROCHE-2436040

PATIENT
  Age: 78 Year
  Sex: Female
  Weight: 48 kg

DRUGS (3)
  1. HERCEPTIN [Suspect]
     Active Substance: TRASTUZUMAB
     Indication: ADENOCARCINOMA GASTRIC
     Route: 041
     Dates: start: 20190906
  2. DOCETAXEL. [Suspect]
     Active Substance: DOCETAXEL
     Indication: ADENOCARCINOMA GASTRIC
     Route: 041
     Dates: start: 20190902
  3. TEGAFUR [Suspect]
     Active Substance: TEGAFUR
     Indication: ADENOCARCINOMA GASTRIC
     Route: 041
     Dates: start: 20190902

REACTIONS (1)
  - Hepatic function abnormal [Recovering/Resolving]

NARRATIVE: CASE EVENT DATE: 20190918
